FAERS Safety Report 10191753 (Version 1)
Quarter: 2014Q2

REPORT INFORMATION
  Report Type: Spontaneous
  Country: US (occurrence: None)
  Receive Date: 20140521
  Receipt Date: 20140521
  Transmission Date: 20141212
  Serious: Yes (Other)
  Sender: FDA-Public Use
  Company Number: 2014-US-005933

PATIENT
  Age: 38 Year
  Sex: Female
  Weight: 99.8 kg

DRUGS (9)
  1. XYREM [Suspect]
     Indication: NARCOLEPSY
     Route: 048
     Dates: start: 201307, end: 2013
  2. XYREM [Suspect]
     Indication: CATAPLEXY
     Route: 048
     Dates: start: 201307, end: 2013
  3. OXCARBAZEPINE (OXCARBAZEPINE) [Concomitant]
  4. VIIBYRD (VILAZODONE HYDROCHLORIDE) [Concomitant]
  5. LISINOPRIL (LISINOPRIL) [Concomitant]
  6. METOPROLOL (METOPROLOL TARTRATE) [Concomitant]
  7. OMEPRAZOLE (OMEPRAZOLE) [Concomitant]
  8. RITALIN [Concomitant]
  9. ATORVASTATIN (ATORVASTATIN CALCIUM) [Concomitant]

REACTIONS (5)
  - Bursitis [None]
  - Tendonitis [None]
  - Muscle rupture [None]
  - Shoulder operation [None]
  - Fall [None]
